FAERS Safety Report 6537326-1 (Version None)
Quarter: 2010Q1

REPORT INFORMATION
  Report Type: 
  Country: None (occurrence: None)
  Receive Date: 20100110
  Receipt Date: 20091228
  Transmission Date: 20100710
  Serious: Yes (Hospitalization)
  Sender: FDA-Public Use
  Company Number: 1-21165324

PATIENT
  Age: 44 Year
  Sex: Female
  Weight: 52.1637 kg

DRUGS (3)
  1. FENTANYL [Suspect]
     Indication: ABDOMINAL PAIN
     Dosage: 100MCG/HR EVERY 72 HR, TRANSDERMAL
     Route: 062
     Dates: start: 20080101, end: 20091226
  2. FENTANYL [Suspect]
     Indication: ABDOMINAL PAIN
     Dosage: 100MCG/HR EVERY 72 HR, TRANSDERMAL
     Route: 062
     Dates: start: 20080101
  3. METHADONE [Concomitant]

REACTIONS (13)
  - BREAST MASS [None]
  - CONDITION AGGRAVATED [None]
  - DRUG WITHDRAWAL SYNDROME [None]
  - FATIGUE [None]
  - FLUID RETENTION [None]
  - MUSCLE TIGHTNESS [None]
  - NO THERAPEUTIC RESPONSE [None]
  - PAIN [None]
  - PRODUCT SUBSTITUTION ISSUE [None]
  - PYREXIA [None]
  - RESTLESSNESS [None]
  - SMALL INTESTINAL OBSTRUCTION [None]
  - VOMITING [None]
